FAERS Safety Report 20493692 (Version 1)
Quarter: 2022Q1

REPORT INFORMATION
  Report Type: Spontaneous
  Country: JP (occurrence: JP)
  Receive Date: 20220221
  Receipt Date: 20220221
  Transmission Date: 20220423
  Serious: Yes (Hospitalization, Other)
  Sender: FDA-Public Use
  Company Number: JP-SUN PHARMACEUTICAL INDUSTRIES LTD-2022RR-326710

PATIENT
  Age: 72 Year
  Sex: Female

DRUGS (1)
  1. IBANDRONIC ACID [Suspect]
     Active Substance: IBANDRONIC ACID
     Indication: Osteoporosis
     Dosage: 1 MILLIGRAM, MONTHLY
     Route: 042

REACTIONS (3)
  - Chronic kidney disease-mineral and bone disorder [Recovering/Resolving]
  - Osteonecrosis of jaw [Not Recovered/Not Resolved]
  - Foot fracture [Unknown]
